FAERS Safety Report 21707191 (Version 3)
Quarter: 2023Q2

REPORT INFORMATION
  Report Type: Spontaneous
  Country: FR (occurrence: FR)
  Receive Date: 20221209
  Receipt Date: 20230620
  Transmission Date: 20230721
  Serious: Yes (Other)
  Sender: FDA-Public Use
  Company Number: FR-JNJFOC-20221056369

PATIENT
  Age: 77 Year
  Sex: Male

DRUGS (10)
  1. ERDAFITINIB [Suspect]
     Active Substance: ERDAFITINIB
     Indication: Transitional cell carcinoma metastatic
     Route: 048
     Dates: start: 20211008, end: 20220525
  2. ERDAFITINIB [Suspect]
     Active Substance: ERDAFITINIB
     Route: 048
  3. ERDAFITINIB [Suspect]
     Active Substance: ERDAFITINIB
     Route: 048
  4. GEMCITABINE [Concomitant]
     Active Substance: GEMCITABINE
     Indication: Metastases to lung
     Dosage: 6 CYCLES OF GEMCITABINE- CARBOPLATIN
     Route: 065
     Dates: start: 202109, end: 202203
  5. CARBOPLATIN [Concomitant]
     Active Substance: CARBOPLATIN
     Indication: Metastases to lung
     Dosage: 6 CYCLES OF GEMCITABINE- CARBOPLATIN
     Route: 065
     Dates: start: 202109, end: 202203
  6. WARFARIN SODIUM [Concomitant]
     Active Substance: WARFARIN SODIUM
     Route: 065
  7. ESOMEPRAZOLE [Concomitant]
     Active Substance: ESOMEPRAZOLE
     Route: 065
  8. ATORVASTATIN [Concomitant]
     Active Substance: ATORVASTATIN
     Route: 065
  9. CHOLECALCIFEROL [Concomitant]
     Active Substance: CHOLECALCIFEROL
     Route: 065
  10. ASPIRIN [Concomitant]
     Active Substance: ASPIRIN
     Route: 065

REACTIONS (1)
  - Mucosal inflammation [Unknown]

NARRATIVE: CASE EVENT DATE: 20211001
